FAERS Safety Report 11648385 (Version 1)
Quarter: 2015Q4

REPORT INFORMATION
  Report Type: Spontaneous
  Country: US (occurrence: US)
  Receive Date: 20151021
  Receipt Date: 20151021
  Transmission Date: 20160304
  Serious: Yes (Hospitalization, Other)
  Sender: FDA-Public Use
  Company Number: US-MUNDIPHARMA DS AND PHARMACOVIGILANCE-USA-2015-0123824

PATIENT
  Age: 57 Year
  Sex: Female
  Weight: 71.2 kg

DRUGS (3)
  1. MORPHINE SULFATE (SIMILAR TO NDA 19-516) [Suspect]
     Active Substance: MORPHINE SULFATE
     Indication: PAIN
     Dosage: UNK
     Route: 048
     Dates: start: 201504, end: 20150522
  2. OXYCONTIN [Suspect]
     Active Substance: OXYCODONE HYDROCHLORIDE
     Indication: PAIN
     Dosage: 90 MG, UNK
     Route: 048
     Dates: start: 1995
  3. OXYCONTIN [Suspect]
     Active Substance: OXYCODONE HYDROCHLORIDE
     Dosage: 40 MG, BID
     Route: 048
     Dates: start: 20150526

REACTIONS (8)
  - Cardiac disorder [Unknown]
  - Pain [Unknown]
  - Drug withdrawal syndrome [Unknown]
  - Loss of consciousness [Unknown]
  - Chest pain [Unknown]
  - Dyspnoea [Unknown]
  - Renal impairment [Unknown]
  - Drug ineffective [Unknown]
